FAERS Safety Report 7460246-5 (Version None)
Quarter: 2011Q2

REPORT INFORMATION
  Report Type: 
  Country: None (occurrence: None)
  Receive Date: 20110505
  Receipt Date: 20110502
  Transmission Date: 20111010
  Serious: Yes (Death)
  Sender: FDA-Public Use
  Company Number: CA-ROCHE-774662

PATIENT
  Age: 41 Year
  Sex: Male

DRUGS (8)
  1. BROMAZEPAM [Suspect]
     Route: 065
  2. METHADONE [Suspect]
     Route: 048
  3. ACETAMINOPHEN [Suspect]
     Route: 048
  4. MIRTAZAPINE [Suspect]
     Route: 048
  5. OXYCODONE [Suspect]
     Route: 048
  6. DIAZEPAM [Suspect]
     Route: 065
  7. DIPHENHYDRAMINE [Suspect]
     Route: 065
  8. CODEINE [Suspect]
     Route: 048

REACTIONS (2)
  - SUBSTANCE ABUSE [None]
  - TOXICITY TO VARIOUS AGENTS [None]
